FAERS Safety Report 6466344-7 (Version None)
Quarter: 2009Q4

REPORT INFORMATION
  Report Type: 
  Country: None (occurrence: None)
  Receive Date: 20091201
  Receipt Date: 20091201
  Transmission Date: 20100525
  Serious: Yes (Other)
  Sender: FDA-Public Use
  Company Number: None

PATIENT
  Age: 62 Year
  Sex: Female
  Weight: 89.8122 kg

DRUGS (1)
  1. FLUPHENAZINE [Suspect]
     Indication: NERVOUS SYSTEM DISORDER
     Dosage: .3CC TWICE A MONTH IM
     Route: 030
     Dates: start: 20080107, end: 20080911

REACTIONS (2)
  - BRUXISM [None]
  - MUSCLE TWITCHING [None]
